FAERS Safety Report 4634826-6 (Version None)
Quarter: 2005Q2

REPORT INFORMATION
  Report Type: 
  Country: None (occurrence: None)
  Receive Date: 20050412
  Receipt Date: 20050401
  Transmission Date: 20051028
  Serious: Yes (Hospitalization)
  Sender: FDA-Public Use
  Company Number: 200510855GDS

PATIENT
  Age: 85 Year
  Sex: Female

DRUGS (9)
  1. CIPROFLOXACIN [Suspect]
     Dosage: 1000 MG, TOTAL DAILY; ORAL
     Route: 048
     Dates: start: 20050228, end: 20050308
  2. ASPIRIN [Suspect]
     Dosage: 100 MG, QD; ORAL
     Route: 048
  3. TOREM (TORSEMIDE) [Suspect]
     Dosage: 10 MG, QD; ORAL
     Route: 048
     Dates: end: 20050306
  4. RENITEN (ENALAPRIL) [Suspect]
     Dosage: 5 MG, QD; ORAL
     Route: 048
     Dates: end: 20050306
  5. MYCOSTATIN [Concomitant]
  6. DIGOXIN [Concomitant]
  7. SERESTA [Concomitant]
  8. PREDNISONE [Concomitant]
  9. NITRODERM [Concomitant]

REACTIONS (8)
  - ATRIAL FIBRILLATION [None]
  - BLOOD PRESSURE DIASTOLIC DECREASED [None]
  - BRADYCARDIA [None]
  - BUNDLE BRANCH BLOCK LEFT [None]
  - HEART RATE DECREASED [None]
  - QRS AXIS ABNORMAL [None]
  - RENAL FAILURE ACUTE [None]
  - THERAPEUTIC AGENT TOXICITY [None]
